FAERS Safety Report 9447917 (Version 1)
Quarter: 2013Q3

REPORT INFORMATION
  Report Type: Spontaneous
  Country: US (occurrence: US)
  Receive Date: 20130808
  Receipt Date: 20130808
  Transmission Date: 20140515
  Serious: Yes (Other)
  Sender: FDA-Public Use
  Company Number: PHEH2013US016603

PATIENT
  Sex: 0

DRUGS (2)
  1. TASIGNA [Suspect]
     Route: 048
  2. TASIGNA [Suspect]
     Dosage: UNK
     Route: 048

REACTIONS (1)
  - Ascites [Unknown]
